FAERS Safety Report 17336941 (Version 1)
Quarter: 2020Q1

REPORT INFORMATION
  Report Type: Spontaneous
  Country: US (occurrence: US)
  Receive Date: 20200129
  Receipt Date: 20200129
  Transmission Date: 20200409
  Serious: Yes (Other)
  Sender: FDA-Public Use
  Company Number: NVSC2020US020745

PATIENT
  Sex: Female

DRUGS (1)
  1. COSENTYX [Suspect]
     Active Substance: SECUKINUMAB
     Indication: PRODUCT USED FOR UNKNOWN INDICATION
     Dosage: UNK
     Route: 065
     Dates: start: 20191206

REACTIONS (6)
  - Pain [Unknown]
  - Osteoarthritis [Not Recovered/Not Resolved]
  - Arthritis [Recovering/Resolving]
  - Rheumatoid arthritis [Recovering/Resolving]
  - Spondylitis [Unknown]
  - Polyarthritis [Recovering/Resolving]
